FAERS Safety Report 5133139-6 (Version None)
Quarter: 2006Q4

REPORT INFORMATION
  Report Type: 
  Country: None (occurrence: None)
  Receive Date: 20061017
  Receipt Date: 20061004
  Transmission Date: 20070319
  Serious: Yes (Other)
  Sender: FDA-Public Use
  Company Number: 2006121204

PATIENT
  Sex: Male

DRUGS (6)
  1. GEODON [Suspect]
     Indication: DEPRESSION
     Dosage: 160 MG (80 MG, FREQUENCY; BID INTERVAL: EVERYDAY), ORAL
     Route: 048
     Dates: start: 20060701
  2. THIORIDAZINE HYDROCHLORIDE                   (THIORIDIZINE HYDROCHLORI [Suspect]
     Indication: DEPRESSION
     Dosage: UEQUENCY: UNKNOWN INTERVAL: , UNKNONW
  3. HALDOL [Concomitant]
  4. AMPLICTIL (CHLORPROMAZINE) [Concomitant]
  5. STELAZINE [Concomitant]
  6. OLANZAPINE [Concomitant]

REACTIONS (2)
  - MENTAL DISORDER [None]
  - THINKING ABNORMAL [None]
